FAERS Safety Report 5743454-0 (Version None)
Quarter: 2008Q2

REPORT INFORMATION
  Report Type: 
  Country: None (occurrence: None)
  Receive Date: 20080519
  Receipt Date: 20080519
  Transmission Date: 20081010
  Serious: Yes (Life-Threatening, Hospitalization)
  Sender: FDA-Public Use
  Company Number: None

PATIENT
  Age: 74 Year
  Sex: Female
  Weight: 79.8331 kg

DRUGS (1)
  1. DIGITEK 0.25 MG AMIDE (BERTEK) [Suspect]
     Indication: ATRIAL FIBRILLATION
     Dosage: 0.25MG ONCE DAILY ORAL
     Route: 048
     Dates: start: 20000301, end: 20080420

REACTIONS (18)
  - ATRIOVENTRICULAR BLOCK COMPLETE [None]
  - BRADYCARDIA [None]
  - CAROTID ARTERY STENOSIS [None]
  - CEREBRAL ATROPHY [None]
  - CONFUSIONAL STATE [None]
  - CYST [None]
  - DIZZINESS [None]
  - HAEMODIALYSIS [None]
  - HYPERKALAEMIA [None]
  - HYPOTENSION [None]
  - INTERNATIONAL NORMALISED RATIO ABNORMAL [None]
  - MENTAL STATUS CHANGES [None]
  - NODAL RHYTHM [None]
  - OLIGURIA [None]
  - RENAL CYST [None]
  - RENAL FAILURE ACUTE [None]
  - SYNCOPE [None]
  - THERAPEUTIC AGENT TOXICITY [None]
